APPROVED DRUG PRODUCT: SODIUM BICARBONATE
Active Ingredient: SODIUM BICARBONATE
Strength: 50MEQ/50ML (1MEQ/ML)
Dosage Form/Route: SOLUTION;INTRAVENOUS
Application: A077394 | Product #002
Applicant: HOSPIRA INC
Approved: Nov 9, 2005 | RLD: No | RS: No | Type: DISCN